FAERS Safety Report 18631873 (Version 1)
Quarter: 2020Q4

REPORT INFORMATION
  Report Type: Other
  Country: CA (occurrence: CA)
  Receive Date: 20201217
  Receipt Date: 20201217
  Transmission Date: 20210114
  Serious: Yes (Other)
  Sender: FDA-Public Use
  Company Number: CA-CELLTRION INC.-2020CA033617

PATIENT

DRUGS (31)
  1. PREDNISONE. [Suspect]
     Active Substance: PREDNISONE
     Indication: PRODUCT USED FOR UNKNOWN INDICATION
     Dosage: 50 MILLIGRAM, 1 EVERY 1 DAY
     Route: 065
  2. MELATONIN [Concomitant]
     Active Substance: MELATONIN
     Route: 065
  3. VITAMIN B6 [Concomitant]
     Active Substance: PYRIDOXINE HYDROCHLORIDE
  4. ZOPICLONE [Concomitant]
     Active Substance: ZOPICLONE
  5. DOXAZOSIN MESYLATE. [Suspect]
     Active Substance: DOXAZOSIN MESYLATE
     Indication: PREMEDICATION
     Dosage: 2 EVERY 1 DAY
     Route: 065
  6. FISH OIL [Concomitant]
     Active Substance: FISH OIL
  7. SLOW K [Concomitant]
     Active Substance: POTASSIUM CHLORIDE
     Route: 065
  8. FUROSEMIDE. [Concomitant]
     Active Substance: FUROSEMIDE
  9. PANTOLOC [PANTOPRAZOLE] [Concomitant]
     Active Substance: PANTOPRAZOLE SODIUM
     Route: 065
  10. SYNTHROID [Concomitant]
     Active Substance: LEVOTHYROXINE SODIUM
  11. DOXAZOSIN [Concomitant]
     Active Substance: DOXAZOSIN MESYLATE
     Route: 065
  12. FERROUS SULFATE. [Concomitant]
     Active Substance: FERROUS SULFATE
  13. NITROGLYCERIN. [Concomitant]
     Active Substance: NITROGLYCERIN
  14. METHYLPREDNISOLONE SODIUM SUCCINATE. [Suspect]
     Active Substance: METHYLPREDNISOLONE SODIUM SUCCINATE
     Indication: PREMEDICATION
     Dosage: 1000 MILLIGRAM
     Route: 042
  15. METOPROLOL. [Concomitant]
     Active Substance: METOPROLOL
  16. XARELTO [Concomitant]
     Active Substance: RIVAROXABAN
  17. RITUXIMAB (UNKNOWN) [Suspect]
     Active Substance: RITUXIMAB
     Indication: GRANULOMATOSIS WITH POLYANGIITIS
     Dosage: 680 MILLIGRAM
     Route: 042
  18. PREDNISONE. [Suspect]
     Active Substance: PREDNISONE
     Dosage: 40 MILLIGRAM, 1 EVERY 1 DAY
     Route: 065
  19. ATORVASTATIN [Concomitant]
     Active Substance: ATORVASTATIN
     Route: 065
  20. FUCIDIN [FUSIDATE SODIUM] [Concomitant]
     Active Substance: FUSIDATE SODIUM
     Route: 065
  21. LIRAGLUTIDE [Concomitant]
     Active Substance: LIRAGLUTIDE
  22. RESTASIS [Concomitant]
     Active Substance: CYCLOSPORINE
  23. SULFAMETHOXAZOLE AND TRIMETHOPRIM [Concomitant]
     Active Substance: SULFAMETHOXAZOLE\TRIMETHOPRIM
  24. DIPHENHYDRAMINE. [Suspect]
     Active Substance: DIPHENHYDRAMINE
     Indication: PREMEDICATION
     Dosage: 50 MILLIGRAM
     Route: 048
  25. ACTONEL [Concomitant]
     Active Substance: RISEDRONATE SODIUM
     Route: 065
  26. VENTOLIN [Concomitant]
     Active Substance: ALBUTEROL SULFATE
  27. METHYLPREDNISOLONE. [Suspect]
     Active Substance: METHYLPREDNISOLONE
     Indication: PREMEDICATION
     Dosage: 1000 MILLIGRAM
     Route: 042
  28. ACETAMINOPHEN. [Concomitant]
     Active Substance: ACETAMINOPHEN
     Dosage: 650 MILLIGRAM
     Route: 048
  29. ALLOPURINOL. [Concomitant]
     Active Substance: ALLOPURINOL
     Route: 065
  30. LORAZEPAM. [Concomitant]
     Active Substance: LORAZEPAM
  31. PULMICORT TURBUHALER [Concomitant]
     Active Substance: BUDESONIDE
     Route: 065

REACTIONS (19)
  - Eye swelling [Not Recovered/Not Resolved]
  - Heart rate decreased [Not Recovered/Not Resolved]
  - Blood pressure increased [Not Recovered/Not Resolved]
  - Muscle spasms [Not Recovered/Not Resolved]
  - Dyspnoea [Not Recovered/Not Resolved]
  - Pulmonary pain [Not Recovered/Not Resolved]
  - Pain in extremity [Not Recovered/Not Resolved]
  - Blood pressure fluctuation [Not Recovered/Not Resolved]
  - Bone pain [Not Recovered/Not Resolved]
  - Rheumatoid arthritis [Not Recovered/Not Resolved]
  - Arthralgia [Not Recovered/Not Resolved]
  - Purpura [Not Recovered/Not Resolved]
  - Pain [Not Recovered/Not Resolved]
  - Abdominal pain [Not Recovered/Not Resolved]
  - Swelling [Not Recovered/Not Resolved]
  - Pharyngeal paraesthesia [Not Recovered/Not Resolved]
  - Fatigue [Not Recovered/Not Resolved]
  - Musculoskeletal chest pain [Not Recovered/Not Resolved]
  - Cough [Not Recovered/Not Resolved]
